FAERS Safety Report 5492835-1 (Version None)
Quarter: 2007Q4

REPORT INFORMATION
  Report Type: 
  Country: None (occurrence: None)
  Receive Date: 20071019
  Receipt Date: 20071010
  Transmission Date: 20080405
  Serious: Yes (Hospitalization)
  Sender: FDA-Public Use
  Company Number: MEDI-0006058

PATIENT
  Age: 5 Month
  Sex: Male
  Weight: 4.4 kg

DRUGS (4)
  1. SYNAGIS [Suspect]
     Indication: ANTIVIRAL PROPHYLAXIS
     Dosage: 15 MG/KG, INTRAMUSCULAR, 15 MG/KG, INTRAMUSCULAR, 15 MG/KG, INTRAMUSCULAR, 15 MG/KG, INTRAMUSCULAR
     Route: 030
     Dates: start: 20061010, end: 20061107
  2. SYNAGIS [Suspect]
     Indication: ANTIVIRAL PROPHYLAXIS
     Dosage: 15 MG/KG, INTRAMUSCULAR, 15 MG/KG, INTRAMUSCULAR, 15 MG/KG, INTRAMUSCULAR, 15 MG/KG, INTRAMUSCULAR
     Route: 030
     Dates: start: 20061010
  3. SYNAGIS [Suspect]
     Indication: ANTIVIRAL PROPHYLAXIS
     Dosage: 15 MG/KG, INTRAMUSCULAR, 15 MG/KG, INTRAMUSCULAR, 15 MG/KG, INTRAMUSCULAR, 15 MG/KG, INTRAMUSCULAR
     Route: 030
     Dates: start: 20070109
  4. SYNAGIS [Suspect]
     Indication: ANTIVIRAL PROPHYLAXIS
     Dosage: 15 MG/KG, INTRAMUSCULAR, 15 MG/KG, INTRAMUSCULAR, 15 MG/KG, INTRAMUSCULAR, 15 MG/KG, INTRAMUSCULAR
     Route: 030
     Dates: start: 20070213

REACTIONS (2)
  - BRONCHIOLITIS [None]
  - RESPIRATORY SYNCYTIAL VIRUS BRONCHIOLITIS [None]
